FAERS Safety Report 5905020-3 (Version None)
Quarter: 2008Q3

REPORT INFORMATION
  Report Type: 
  Country: None (occurrence: None)
  Receive Date: 20080909
  Receipt Date: 20080513
  Transmission Date: 20090109
  Serious: Yes (Hospitalization, Disabling)
  Sender: FDA-Public Use
  Company Number: 163-20785-08041161

PATIENT
  Age: 44 Year
  Sex: Female

DRUGS (6)
  1. THALOMID [Suspect]
     Indication: MULTIPLE MYELOMA
     Dosage: 200 MG, 2 IN 1 D, ORAL
     Route: 048
     Dates: start: 20080219, end: 20080406
  2. DEXAMETHASONE TAB [Suspect]
     Indication: MULTIPLE MYELOMA
     Dates: start: 20080219
  3. VELCADE [Suspect]
     Indication: MULTIPLE MYELOMA
     Dates: start: 20080219
  4. WARFARIN SODIUM [Concomitant]
  5. ASPIRIN [Concomitant]
  6. ACYCLOVIR [Concomitant]

REACTIONS (2)
  - NEUROPATHY PERIPHERAL [None]
  - PNEUMONIA [None]
